FAERS Safety Report 5795849-7 (Version None)
Quarter: 2008Q3

REPORT INFORMATION
  Report Type: 
  Country: None (occurrence: None)
  Receive Date: 20080701
  Receipt Date: 20080626
  Transmission Date: 20090109
  Serious: Yes (Hospitalization, Disabling)
  Sender: FDA-Public Use
  Company Number: PHHO2005RO05264

PATIENT
  Sex: Female
  Weight: 53 kg

DRUGS (16)
  1. ACLASTA/ZOLEDRONATE T29581+A+SOLINJ+OS [Suspect]
     Indication: OSTEOPOROSIS
     Dosage: 5MG
     Route: 042
     Dates: start: 20041001
  2. SOLU-MEDROL [Concomitant]
     Indication: RHEUMATOID VASCULITIS
     Dosage: 250 MG, QD
     Route: 042
     Dates: start: 20040719, end: 20040719
  3. SOLU-MEDROL [Concomitant]
     Dosage: 500 MG, QD
     Route: 042
     Dates: start: 20040814, end: 20040814
  4. SOLU-MEDROL [Concomitant]
     Dosage: 500 MG, QD
     Route: 042
     Dates: start: 20041102, end: 20041102
  5. SOLU-MEDROL [Concomitant]
     Dosage: 250 MG, QD
     Dates: start: 20041208, end: 20041208
  6. SOLU-MEDROL [Concomitant]
     Dosage: 500 MG, QD
     Route: 042
     Dates: start: 20041210, end: 20041213
  7. SOLU-MEDROL [Concomitant]
     Dosage: 500 MG, QD
     Route: 042
     Dates: start: 20050202, end: 20050202
  8. SOLU-MEDROL [Concomitant]
     Dosage: 500 MG, QD
     Route: 042
     Dates: start: 20050323, end: 20050323
  9. ENDOXAN [Concomitant]
     Indication: RHEUMATOID VASCULITIS
     Dosage: 600 MG, QMO
     Route: 048
     Dates: start: 20040719
  10. MEDROL [Concomitant]
     Dosage: 8 MG, QD
     Route: 048
     Dates: start: 20020501, end: 20040701
  11. PREDNISONE [Concomitant]
     Dosage: 25 MG, QD
     Route: 048
     Dates: start: 20040714, end: 20040718
  12. PREDNISONE [Concomitant]
     Dosage: 12.5 MG, QD
     Route: 048
     Dates: start: 20040722, end: 20040908
  13. PREDNISONE [Concomitant]
     Dosage: 10 MG, QD
     Route: 048
     Dates: start: 20040909, end: 20041102
  14. PREDNISONE [Concomitant]
     Dosage: 7.5 MG, QD
     Route: 048
     Dates: start: 20041103, end: 20041206
  15. PREDNISONE [Concomitant]
     Dosage: 10 MG, QD
     Route: 048
     Dates: start: 20041207
  16. PREDNISONE [Concomitant]
     Dosage: 15 MG, QD
     Route: 048
     Dates: start: 20040719, end: 20040721

REACTIONS (6)
  - ARTHRALGIA [None]
  - ARTHRITIS [None]
  - DISEASE PROGRESSION [None]
  - HIP ARTHROPLASTY [None]
  - JOINT STIFFNESS [None]
  - OSTEONECROSIS [None]
